FAERS Safety Report 24592003 (Version 1)
Quarter: 2024Q4

REPORT INFORMATION
  Report Type: Spontaneous
  Country: US (occurrence: US)
  Receive Date: 20241108
  Receipt Date: 20241108
  Transmission Date: 20250115
  Serious: Yes (Hospitalization, Other)
  Sender: ASTELLAS
  Company Number: US-GILEAD-2024-0692677

PATIENT
  Sex: Male

DRUGS (3)
  1. AMBISOME [Suspect]
     Active Substance: AMPHOTERICIN B
     Indication: Candida infection
     Dosage: UNK
     Route: 065
  2. POSACONAZOLE [Concomitant]
     Active Substance: POSACONAZOLE
     Indication: Product used for unknown indication
     Route: 065
  3. REZAFUNGIN [Concomitant]
     Active Substance: REZAFUNGIN
     Indication: Product used for unknown indication
     Route: 065

REACTIONS (2)
  - Abdominal abscess [Unknown]
  - Candida infection [Unknown]
